FAERS Safety Report 10436018 (Version 1)
Quarter: 2014Q3

REPORT INFORMATION
  Report Type: Spontaneous
  Country: US (occurrence: None)
  Receive Date: 20140904
  Receipt Date: 20140904
  Transmission Date: 20150326
  Serious: Yes (Other)
  Sender: FDA-Public Use
  Company Number: 54973 SE # 1550

PATIENT
  Age: 10 Month
  Sex: Female

DRUGS (1)
  1. BABY TEETHING [Suspect]
     Active Substance: ARABICA COFFEE BEAN\ATROPA BELLADONNA\CALCIUM PHOSPHATE\CHAMOMILE
     Indication: TEETHING
     Dosage: 1-2  TABS ID TID X 1 WEEK

REACTIONS (3)
  - Seizure like phenomena [None]
  - Tremor [None]
  - Muscle tightness [None]

NARRATIVE: CASE EVENT DATE: 20140525
